FAERS Safety Report 14617705 (Version 4)
Quarter: 2019Q1

REPORT INFORMATION
  Report Type: Report from Study
  Country: CA (occurrence: CA)
  Receive Date: 20180309
  Receipt Date: 20190325
  Transmission Date: 20190417
  Serious: Yes (Other)
  Sender: FDA-Public Use
  Company Number: CA-JNJFOC-20180304827

PATIENT
  Age: 40 Year
  Sex: Female
  Weight: 70.31 kg

DRUGS (4)
  1. REMICADE [Suspect]
     Active Substance: INFLIXIMAB
     Indication: CROHN^S DISEASE
     Dosage: STRENGTH = 100 MG
     Route: 042
     Dates: start: 20140214
  2. REMICADE [Suspect]
     Active Substance: INFLIXIMAB
     Indication: CROHN^S DISEASE
     Route: 042
     Dates: start: 20180302
  3. IMURAN [Concomitant]
     Active Substance: AZATHIOPRINE
     Route: 048
  4. REMICADE [Suspect]
     Active Substance: INFLIXIMAB
     Indication: CROHN^S DISEASE
     Route: 042
     Dates: start: 2014

REACTIONS (7)
  - Exposure during pregnancy [Recovered/Resolved]
  - Abortion spontaneous [Unknown]
  - Off label use [Unknown]
  - Gastric neoplasm [Unknown]
  - Product use issue [Unknown]
  - Abdominal pain [Not Recovered/Not Resolved]
  - Human chorionic gonadotropin decreased [Unknown]

NARRATIVE: CASE EVENT DATE: 2014
